FAERS Safety Report 9997831 (Version 2)
Quarter: 2014Q1

REPORT INFORMATION
  Report Type: Spontaneous
  Country: FR (occurrence: FR)
  Receive Date: 20140311
  Receipt Date: 20140311
  Transmission Date: 20141002
  Serious: Yes (Hospitalization)
  Sender: FDA-Public Use
  Company Number: FR-GE HEALTHCARE MEDICAL DIAGNOSTICS-VISP-NO-0404S-0161

PATIENT
  Age: 78 Year
  Sex: Male

DRUGS (2)
  1. VISIPAQUE [Suspect]
     Indication: CORONARY ARTERY STENOSIS
     Route: 013
     Dates: start: 20040317, end: 20040317
  2. VISIPAQUE [Suspect]
     Indication: DIAGNOSTIC PROCEDURE

REACTIONS (2)
  - Rash erythematous [Recovered/Resolved]
  - Pruritus [Recovered/Resolved]
